FAERS Safety Report 11528823 (Version 1)
Quarter: 2015Q3

REPORT INFORMATION
  Report Type: Spontaneous
  Country: US (occurrence: US)
  Receive Date: 20150921
  Receipt Date: 20150921
  Transmission Date: 20151125
  Serious: No
  Sender: FDA-Public Use
  Company Number: US-PFIZER INC-2015304178

PATIENT
  Age: 56 Year
  Sex: Female
  Weight: 113 kg

DRUGS (6)
  1. THIAZIDE [Concomitant]
     Active Substance: UNSPECIFIED INGREDIENT
     Indication: OEDEMA
  2. LYRICA [Suspect]
     Active Substance: PREGABALIN
     Dosage: 150 MG, 3X/DAY
     Dates: end: 2014
  3. ZOCOR [Concomitant]
     Active Substance: SIMVASTATIN
     Indication: BLOOD CHOLESTEROL ABNORMAL
     Dosage: 20 MG, 1X/DAY
     Route: 048
  4. THIAZIDE [Concomitant]
     Active Substance: UNSPECIFIED INGREDIENT
     Indication: HYPERTENSION
     Dosage: UNK UNK, 1X/DAY
     Route: 048
  5. LYRICA [Suspect]
     Active Substance: PREGABALIN
     Indication: NEUROPATHY PERIPHERAL
     Dosage: 75 MG, 3X/DAY
  6. LYRICA [Suspect]
     Active Substance: PREGABALIN
     Dosage: 150 MG, 1X/DAY
     Dates: start: 2014

REACTIONS (7)
  - Disease recurrence [Unknown]
  - Therapeutic response unexpected [Not Recovered/Not Resolved]
  - Peripheral swelling [Recovered/Resolved]
  - Drug ineffective for unapproved indication [Recovered/Resolved]
  - Pain [Unknown]
  - Restless legs syndrome [Recovered/Resolved]
  - Pre-existing condition improved [Not Recovered/Not Resolved]
